FAERS Safety Report 8624136-4 (Version None)
Quarter: 2012Q3

REPORT INFORMATION
  Report Type: 
  Country: None (occurrence: None)
  Receive Date: 20120827
  Receipt Date: 20120823
  Transmission Date: 20120928
  Serious: Yes (Other)
  Sender: FDA-Public Use
  Company Number: US-JNJFOC-20120812224

PATIENT
  Sex: Male

DRUGS (4)
  1. PREMEDICATION [Concomitant]
     Indication: PREMEDICATION
     Route: 065
  2. ANTIANXIETY NOS [Concomitant]
     Route: 065
  3. BENADRYL [Concomitant]
     Route: 065
  4. REMICADE [Suspect]
     Indication: PRODUCT USED FOR UNKNOWN INDICATION
     Route: 042

REACTIONS (2)
  - INFUSION RELATED REACTION [None]
  - ANXIETY [None]
